FAERS Safety Report 11906394 (Version 1)
Quarter: 2016Q1

REPORT INFORMATION
  Report Type: Spontaneous
  Country: US (occurrence: US)
  Receive Date: 20160111
  Receipt Date: 20160111
  Transmission Date: 20160526
  Serious: No
  Sender: FDA-Public Use
  Company Number: US-PFIZER INC-2015449253

PATIENT
  Sex: Female

DRUGS (1)
  1. CHILDRENS ADVIL [Suspect]
     Active Substance: IBUPROFEN
     Indication: HEADACHE
     Dosage: UNKNOWN

REACTIONS (4)
  - Drug administered to patient of inappropriate age [Unknown]
  - Cough [Unknown]
  - Oropharyngeal pain [Unknown]
  - Drug ineffective [Unknown]
